FAERS Safety Report 5936867-5 (Version None)
Quarter: 2008Q4

REPORT INFORMATION
  Report Type: 
  Country: None (occurrence: None)
  Receive Date: 20081031
  Receipt Date: 20081021
  Transmission Date: 20090506
  Serious: Yes (Other)
  Sender: FDA-Public Use
  Company Number: US-JNJFOC-20081005535

PATIENT
  Age: 71 Year
  Sex: Male
  Weight: 73.48 kg

DRUGS (9)
  1. EXTRA STRENGTH TYLENOL [Suspect]
  2. EXTRA STRENGTH TYLENOL [Suspect]
     Indication: ARTHRALGIA
  3. DIAZEPAM [Concomitant]
     Indication: ANXIETY
  4. AVODART [Concomitant]
  5. PROTONIX [Concomitant]
  6. LIPITOR [Concomitant]
  7. LIPFLAVONOID DIETARY SUPPLEMENT [Concomitant]
     Indication: MENIERE'S DISEASE
  8. FLAX SEED OIL [Concomitant]
     Indication: KERATOCONJUNCTIVITIS SICCA
  9. MULTI-VITAMIN [Concomitant]

REACTIONS (2)
  - CLAUSTROPHOBIA [None]
  - DEPRESSION [None]
